FAERS Safety Report 19627442 (Version 1)
Quarter: 2021Q3

REPORT INFORMATION
  Report Type: Report from Study
  Country: CA (occurrence: CA)
  Receive Date: 20210728
  Receipt Date: 20210728
  Transmission Date: 20211014
  Serious: Yes (Disabling, Other)
  Sender: FDA-Public Use
  Company Number: CA-ASTRAZENECA-2021A351232

PATIENT
  Sex: Male

DRUGS (1)
  1. CALQUENCE [Suspect]
     Active Substance: ACALABRUTINIB
     Indication: CHRONIC LYMPHOCYTIC LEUKAEMIA
     Route: 048
     Dates: start: 20210218, end: 20210420

REACTIONS (4)
  - Anaemia [Not Recovered/Not Resolved]
  - Adverse drug reaction [Unknown]
  - Asthenia [Recovering/Resolving]
  - Amnesia [Recovering/Resolving]
